FAERS Safety Report 5867434-X (Version None)
Quarter: 2008Q3

REPORT INFORMATION
  Report Type: 
  Country: None (occurrence: None)
  Receive Date: 20080902
  Receipt Date: 20080902
  Transmission Date: 20090109
  Serious: Yes (Hospitalization)
  Sender: FDA-Public Use
  Company Number: PHEH1996US00295

PATIENT
  Sex: Female
  Weight: 55.5 kg

DRUGS (7)
  1. NEORAL [Suspect]
     Route: 048
     Dates: start: 19950902
  2. PREDNISONE TAB [Concomitant]
  3. IMURAN [Concomitant]
  4. SEPTRA [Concomitant]
  5. MYCELEX [Concomitant]
  6. ACYCLOVIR [Concomitant]
  7. ASPIRIN [Concomitant]

REACTIONS (2)
  - LIVER FUNCTION TEST ABNORMAL [None]
  - TRANSPLANT REJECTION [None]
